FAERS Safety Report 4708864-9 (Version None)
Quarter: 2005Q3

REPORT INFORMATION
  Report Type: 
  Country: None (occurrence: None)
  Receive Date: 20050705
  Receipt Date: 20050620
  Transmission Date: 20060218
  Serious: Yes (Death)
  Sender: FDA-Public Use
  Company Number: GBR-2005-0001744

PATIENT
  Age: 55 Year
  Sex: Female

DRUGS (5)
  1. OXYCONTIN [Suspect]
     Dosage: SEE IMAGE
     Dates: start: 20030507, end: 20030530
  2. OXYCONTIN [Suspect]
     Dosage: SEE IMAGE
     Dates: start: 20030530
  3. PAROXETINE HYDROCHLRIDE [Concomitant]
  4. LORMETAZEPAM [Concomitant]
  5. ZOFRAN [Concomitant]

REACTIONS (2)
  - COMA [None]
  - HAEMATEMESIS [None]
